FAERS Safety Report 9778556 (Version 2)
Quarter: 2014Q2

REPORT INFORMATION
  Report Type: Spontaneous
  Country: US (occurrence: None)
  Receive Date: 20131219
  Receipt Date: 20140404
  Transmission Date: 20141212
  Serious: Yes (Other)
  Sender: FDA-Public Use
  Company Number: 2013-US-004263

PATIENT
  Age: 47 Year
  Sex: Female

DRUGS (13)
  1. XYREM (SODIUM OXYBATE) ORAL SOLUTION, 500 MG/ML [Suspect]
     Indication: CATAPLEXY
     Dosage: 3 G, BID, ORAL
     Route: 048
     Dates: start: 201006, end: 2010
  2. XYREM (SODIUM OXYBATE) ORAL SOLUTION, 500 MG/ML [Suspect]
     Indication: NARCOLEPSY
     Dosage: 3 G, BID, ORAL
     Route: 048
     Dates: start: 201006, end: 2010
  3. KADIAN (MORPHINE SULFATE) [Concomitant]
  4. LAMICTAL (LAMOTRIGINE) [Concomitant]
  5. CLONAZEPAM (CLONAZEPAM) [Concomitant]
  6. TIZANIDINE (TIZANIDINE HYDROCHLORIDE) [Concomitant]
  7. XANAX (ALPRAZOLAM) [Concomitant]
  8. BYETTA (EXENATIDE) [Concomitant]
  9. AMITRIPTYLINE HCL (AMITRIPTYLINE HYDROCHLORIDE) [Concomitant]
  10. SYNTHROID (LEVOTHYROXINE SODIUM) [Concomitant]
  11. MODAFINIL (MODAFINIL) [Concomitant]
  12. CYMBALTA [Concomitant]
  13. METFORMIN (METFORMIN HYDROCHLORIDE) [Concomitant]

REACTIONS (4)
  - Rectal prolapse [None]
  - Bladder prolapse [None]
  - Gallbladder operation [None]
  - Intestinal prolapse [None]
